FAERS Safety Report 4870409-0 (Version None)
Quarter: 2005Q4

REPORT INFORMATION
  Report Type: 
  Country: None (occurrence: None)
  Receive Date: 20051228
  Receipt Date: 20051205
  Transmission Date: 20060501
  Serious: Yes (Other)
  Sender: FDA-Public Use
  Company Number: AZAUS200S00460

PATIENT
  Age: 73 Year
  Sex: Male
  Weight: 84.369 kg

DRUGS (2)
  1. VIDAZA [Suspect]
     Indication: MYELODYSPLASTIC SYNDROME
     Dosage: 75 MG/M2 (DAILY X 5 DAYS), SUBCUTANEOUS
     Route: 058
     Dates: start: 20051024, end: 20051028
  2. THALIDOMIDE (THALIDOMIDE) [Suspect]
     Indication: MYELODYSPLASTIC SYNDROME
     Dosage: 50 MG (DAILY), ORAL
     Route: 048
     Dates: start: 20051024, end: 20051205

REACTIONS (7)
  - ANOREXIA [None]
  - ASTHENIA [None]
  - CLOSTRIDIAL INFECTION [None]
  - DIFFICULTY IN WALKING [None]
  - MALAISE [None]
  - NAUSEA [None]
  - PNEUMONIA [None]
